FAERS Safety Report 21453255 (Version 2)
Quarter: 2022Q4

REPORT INFORMATION
  Report Type: Report from Study
  Country: NO (occurrence: NO)
  Receive Date: 20221013
  Receipt Date: 20221019
  Transmission Date: 20230113
  Serious: Yes (Hospitalization, Other)
  Sender: FDA-Public Use
  Company Number: NO-BRISTOL-MYERS SQUIBB COMPANY-2022-082909

PATIENT
  Age: 69 Year
  Sex: Female
  Weight: 70 kg

DRUGS (18)
  1. AZACITIDINE [Suspect]
     Active Substance: AZACITIDINE
     Indication: Acute myeloid leukaemia
     Route: 058
     Dates: start: 20220530
  2. SERETIDE [Concomitant]
     Active Substance: FLUTICASONE PROPIONATE\SALMETEROL XINAFOATE
     Indication: Asthma
     Dosage: 25-50 UG
     Route: 055
     Dates: start: 201803
  3. PRESOLONE [PREDNISOLONE] [Concomitant]
     Indication: Polymyalgia rheumatica
     Route: 048
     Dates: start: 202011
  4. ALBUTEROL [Concomitant]
     Active Substance: ALBUTEROL
     Indication: Asthma
     Dosage: OCCASIONAL
     Route: 055
     Dates: start: 199006
  5. IMOVANE [Concomitant]
     Active Substance: ZOPICLONE
     Indication: Insomnia
     Dosage: OCASSIONAL
     Route: 048
     Dates: start: 202201
  6. VORICONAZOLE [Concomitant]
     Active Substance: VORICONAZOLE
     Indication: Prophylaxis
     Route: 048
     Dates: start: 20220530
  7. OMEGA 3 [Concomitant]
     Active Substance: CAPSAICIN
     Indication: Prophylaxis
     Route: 048
     Dates: start: 2022
  8. CIPROFLOXACIN [Concomitant]
     Active Substance: CIPROFLOXACIN
     Indication: Prophylaxis
     Route: 048
     Dates: start: 20220623
  9. OXAZEPAM [Concomitant]
     Active Substance: OXAZEPAM
     Indication: Insomnia
     Dosage: OCCASIONAL
     Route: 048
     Dates: start: 202201
  10. ALLOPURINOL [Concomitant]
     Active Substance: ALLOPURINOL
     Indication: Prophylaxis
     Route: 048
     Dates: start: 20220530
  11. CETIRIZINE HYDROCHLORIDE [Concomitant]
     Active Substance: CETIRIZINE HYDROCHLORIDE
     Indication: Prophylaxis
     Route: 048
     Dates: start: 20220530
  12. KOLEKALSIFEROL [Concomitant]
     Indication: Prophylaxis
     Route: 048
     Dates: start: 20220528
  13. MAGNESIUM [Concomitant]
     Active Substance: MAGNESIUM
     Indication: Prophylaxis
     Route: 048
     Dates: start: 2022
  14. ONDANSETRON [Concomitant]
     Active Substance: ONDANSETRON
     Indication: Prophylaxis
     Route: 048
     Dates: start: 20220530
  15. OKSYKODON DEPOT [Concomitant]
     Indication: Polymyalgia rheumatica
     Route: 048
     Dates: start: 20220618
  16. ACETAMINOPHEN [Concomitant]
     Active Substance: ACETAMINOPHEN
     Indication: Prophylaxis
     Route: 048
     Dates: start: 20220607
  17. VITAMIN B COMPLEX [Concomitant]
     Active Substance: CYANOCOBALAMIN\DEXPANTHENOL\NIACINAMIDE\PYRIDOXINE HYDROCHLORIDE\RIBOFLAVIN 5^-PHOSPHATE SODIUM\THIA
     Indication: Prophylaxis
     Route: 048
     Dates: start: 2022
  18. NEURONTIN [Concomitant]
     Active Substance: GABAPENTIN
     Indication: Arm amputation
     Route: 048
     Dates: start: 20210901

REACTIONS (1)
  - Febrile neutropenia [Recovered/Resolved]

NARRATIVE: CASE EVENT DATE: 20220728
